FAERS Safety Report 7240306-4 (Version None)
Quarter: 2011Q1

REPORT INFORMATION
  Report Type: 
  Country: None (occurrence: None)
  Receive Date: 20110124
  Receipt Date: 20110118
  Transmission Date: 20110831
  Serious: Yes (Other)
  Sender: FDA-Public Use
  Company Number: SE-AMGEN-SWESP2011003553

PATIENT
  Age: 36 Year
  Sex: Female

DRUGS (7)
  1. ACETAMINOPHEN W/ CODEINE [Concomitant]
     Dosage: UNK
  2. FOLACIN [Concomitant]
     Dosage: UNK
  3. METHOTREXATE [Concomitant]
     Dosage: UNK
  4. DUOTRAV [Concomitant]
     Dosage: UNK
  5. ENBREL [Suspect]
     Indication: PRODUCT USED FOR UNKNOWN INDICATION
     Dosage: 50 MG, WEEKLY
     Dates: start: 20090309
  6. ACETAMINOPHEN [Concomitant]
     Dosage: UNK
  7. PRONAXEN [Concomitant]
     Dosage: UNK

REACTIONS (2)
  - MACULAR OEDEMA [None]
  - VISUAL IMPAIRMENT [None]
